FAERS Safety Report 23356325 (Version 3)
Quarter: 2025Q1

REPORT INFORMATION
  Report Type: Report from Study
  Country: US (occurrence: US)
  Receive Date: 20240102
  Receipt Date: 20250327
  Transmission Date: 20250409
  Serious: Yes (Other)
  Sender: TEVA
  Company Number: CO-TEVA-VS-3139089

PATIENT
  Age: 42 Year
  Sex: Female

DRUGS (5)
  1. SCOPOLAMINE [Suspect]
     Active Substance: SCOPOLAMINE
     Indication: Motion sickness
     Route: 065
  2. HEPATITIS B VIRUS VACCINE [Suspect]
     Active Substance: HEPATITIS B VIRUS VACCINE
     Indication: Hepatitis B immunisation
     Route: 065
  3. ESCITALOPRAM [Suspect]
     Active Substance: ESCITALOPRAM OXALATE
     Indication: Depression
     Route: 065
  4. YELLOW FEVER VACCINE NOS [Suspect]
     Active Substance: YELLOW FEVER VIRUS STRAIN 17D-204 LIVE ANTIGEN
     Indication: Yellow fever immunisation
     Route: 058
  5. HEPATITIS A VACCINE NOS [Suspect]
     Active Substance: HEPATITIS A VACCINE, INACTIVATED
     Indication: Hepatitis A immunisation
     Route: 065

REACTIONS (3)
  - Abortion spontaneous [Unknown]
  - Off label use [Unknown]
  - Maternal exposure during pregnancy [Unknown]
